FAERS Safety Report 21304249 (Version 2)
Quarter: 2022Q4

REPORT INFORMATION
  Report Type: Spontaneous
  Country: JP (occurrence: JP)
  Receive Date: 20220907
  Receipt Date: 20221024
  Transmission Date: 20230113
  Serious: Yes (Hospitalization)
  Sender: FDA-Public Use
  Company Number: JP-Eisai-202205585_FYC_P_1

PATIENT
  Age: 83 Year
  Sex: Male
  Weight: 60 kg

DRUGS (10)
  1. FYCOMPA [Suspect]
     Active Substance: PERAMPANEL
     Indication: Focal dyscognitive seizures
     Route: 048
     Dates: start: 20210209, end: 20210405
  2. FYCOMPA [Suspect]
     Active Substance: PERAMPANEL
     Route: 048
     Dates: start: 20210406, end: 20210726
  3. FYCOMPA [Suspect]
     Active Substance: PERAMPANEL
     Route: 048
     Dates: start: 20210727, end: 20220829
  4. ASPIRIN [Suspect]
     Active Substance: ASPIRIN
     Indication: Angina pectoris
     Route: 048
     Dates: start: 20210903, end: 20220829
  5. ASPIRIN [Suspect]
     Active Substance: ASPIRIN
     Indication: Cerebral infarction
  6. MAGNESIUM OXIDE [Concomitant]
     Active Substance: MAGNESIUM OXIDE
     Indication: Constipation
     Route: 048
     Dates: start: 20210903, end: 20220829
  7. REBAMIPIDE [Concomitant]
     Active Substance: REBAMIPIDE
     Indication: Chronic gastritis
     Route: 048
     Dates: start: 20210903, end: 20220829
  8. SENNOSIDES [Concomitant]
     Active Substance: SENNOSIDES
     Indication: Constipation
     Route: 048
     Dates: start: 20210903, end: 20220829
  9. ALLOPURINOL [Concomitant]
     Active Substance: ALLOPURINOL
     Indication: Hyperuricaemia
     Route: 048
     Dates: start: 20210903, end: 20220829
  10. RABEPRAZOLE SODIUM [Concomitant]
     Active Substance: RABEPRAZOLE SODIUM
     Indication: Gastrooesophageal reflux disease
     Route: 048
     Dates: start: 20210903, end: 20220829

REACTIONS (2)
  - Depressed level of consciousness [Recovered/Resolved]
  - Anticonvulsant drug level increased [Recovered/Resolved]

NARRATIVE: CASE EVENT DATE: 20220610
